FAERS Safety Report 26073260 (Version 1)
Quarter: 2025Q4

REPORT INFORMATION
  Report Type: Spontaneous
  Country: US (occurrence: US)
  Receive Date: 20251121
  Receipt Date: 20251121
  Transmission Date: 20260117
  Serious: No
  Sender: OTSUKA
  Company Number: US-OTSUKA-2024_029847

PATIENT
  Sex: Female
  Weight: 69.4 kg

DRUGS (4)
  1. NUEDEXTA [Suspect]
     Active Substance: DEXTROMETHORPHAN HYDROBROMIDE\QUINIDINE SULFATE
     Indication: Affect lability
     Dosage: UNK (20-10MG) BID (4:30 IN THE MORNING AND 4:30 IN THE EVENING)
     Route: 065
  2. CLONAZEPAM [Concomitant]
     Active Substance: CLONAZEPAM
     Indication: Blepharospasm
     Dosage: UNK
     Route: 065
  3. CLONAZEPAM [Concomitant]
     Active Substance: CLONAZEPAM
     Indication: Muscle twitching
  4. HYDROCODONE [Concomitant]
     Active Substance: HYDROCODONE
     Indication: Product used for unknown indication
     Dosage: UNK
     Route: 065

REACTIONS (10)
  - Speech disorder [Unknown]
  - Photophobia [Unknown]
  - Insomnia [Unknown]
  - Amnesia [Unknown]
  - Headache [Unknown]
  - Eye pain [Unknown]
  - Agitation [Unknown]
  - Disease recurrence [Unknown]
  - Product dose omission issue [Unknown]
  - Therapy interrupted [Unknown]
